FAERS Safety Report 7315561-2 (Version None)
Quarter: 2011Q1

REPORT INFORMATION
  Report Type: 
  Country: None (occurrence: None)
  Receive Date: 20110218
  Receipt Date: 20110218
  Transmission Date: 20110831
  Serious: Yes (Hospitalization)
  Sender: FDA-Public Use
  Company Number: None

PATIENT
  Age: 85 Year
  Sex: Female
  Weight: 68.2 kg

DRUGS (13)
  1. LUTEIN [Concomitant]
  2. THEOPHYLLINE [Suspect]
     Indication: ASTHMA
     Dosage: 200MG BID PO CHRONIC
     Route: 048
  3. NABUMETONE [Concomitant]
  4. NIFEDIPINE [Concomitant]
  5. HYDROCHLOROTHIAZIDE [Concomitant]
  6. BACLOFEN [Concomitant]
  7. CELEXA [Concomitant]
  8. DIOVAN [Concomitant]
  9. CENTRUM [Concomitant]
  10. TRAMADOL HCL [Concomitant]
  11. CALTRATE [Concomitant]
  12. ADVAIR DISKUS 100/50 [Concomitant]
  13. ALBUTEROL [Concomitant]

REACTIONS (7)
  - DEHYDRATION [None]
  - TOXICITY TO VARIOUS AGENTS [None]
  - HYPOPHAGIA [None]
  - RENAL FAILURE ACUTE [None]
  - PSYCHOMOTOR HYPERACTIVITY [None]
  - MENTAL STATUS CHANGES [None]
  - TANGENTIALITY [None]
